FAERS Safety Report 10253291 (Version 1)
Quarter: 2014Q2

REPORT INFORMATION
  Report Type: Spontaneous
  Country: US (occurrence: None)
  Receive Date: 20140619
  Receipt Date: 20140619
  Transmission Date: 20141212
  Serious: No
  Sender: FDA-Public Use
  Company Number: None

PATIENT
  Age: 82 Year
  Sex: Female
  Weight: 68.04 kg

DRUGS (5)
  1. METOPROLOL ER [Suspect]
     Indication: HYPERTENSION
     Dosage: ONCE A DAY AM.
     Route: 048
     Dates: start: 20140324
  2. METOPROLOL ER [Suspect]
     Indication: EXTRASYSTOLES
     Dosage: ONCE A DAY AM.
     Route: 048
     Dates: start: 20140324
  3. FISH OIL [Concomitant]
  4. CITRACAL-D+3 [Concomitant]
  5. VITAMIN D3 [Concomitant]

REACTIONS (2)
  - Pruritus [None]
  - Rash [None]
